FAERS Safety Report 9540480 (Version 2)
Quarter: 2013Q3

REPORT INFORMATION
  Report Type: Spontaneous
  Country: IT (occurrence: IT)
  Receive Date: 20130920
  Receipt Date: 20130920
  Transmission Date: 20140515
  Serious: Yes (Other)
  Sender: FDA-Public Use
  Company Number: PHHY2013IT099794

PATIENT
  Sex: Male

DRUGS (3)
  1. LEVOFLOXACIN [Suspect]
     Indication: RESPIRATORY TRACT INFECTION
     Dosage: 500 MG, ONCE/SINGLE
     Route: 048
     Dates: start: 20130827, end: 20130827
  2. FOLINA [Concomitant]
  3. ARIXTRA [Concomitant]

REACTIONS (5)
  - Disease prodromal stage [Recovering/Resolving]
  - Abdominal pain upper [Recovering/Resolving]
  - Anaphylactoid reaction [Recovering/Resolving]
  - Hyperhidrosis [Recovering/Resolving]
  - Syncope [Recovering/Resolving]
